FAERS Safety Report 9648561 (Version 2)
Quarter: 2013Q4

REPORT INFORMATION
  Report Type: Report from Study
  Country: FR (occurrence: FR)
  Receive Date: 20131028
  Receipt Date: 20131212
  Transmission Date: 20140711
  Serious: Yes (Hospitalization)
  Sender: FDA-Public Use
  Company Number: FR-ROCHE-1293177

PATIENT
  Age: 53 Year
  Sex: Male
  Weight: 84 kg

DRUGS (7)
  1. PEG-INTERFERON ALFA 2A [Suspect]
     Indication: CHRONIC HEPATITIS C
     Route: 058
     Dates: start: 20130115, end: 20130703
  2. RIBAVIRIN [Suspect]
     Indication: CHRONIC HEPATITIS C
     Route: 048
     Dates: start: 20130115, end: 20130703
  3. PREVISCAN (FRANCE) [Concomitant]
     Indication: MYOCARDIAL INFARCTION
     Dosage: 30-35 MG
     Route: 048
     Dates: start: 20090101, end: 20130708
  4. PREVISCAN (FRANCE) [Concomitant]
     Dosage: 30-35 MG
     Route: 048
     Dates: start: 20130813
  5. TENORMINE [Concomitant]
     Indication: ATRIAL FLUTTER
     Route: 048
     Dates: start: 20090101, end: 20130707
  6. TENORMINE [Concomitant]
     Route: 048
     Dates: start: 20130812
  7. FLECAINE [Concomitant]
     Indication: ATRIAL FLUTTER
     Route: 048
     Dates: start: 20090101, end: 20130707

REACTIONS (3)
  - Renal failure [Recovered/Resolved with Sequelae]
  - Gastrointestinal haemorrhage [Recovered/Resolved]
  - Atrioventricular block [Recovered/Resolved]
